FAERS Safety Report 20491418 (Version 8)
Quarter: 2023Q1

REPORT INFORMATION
  Report Type: Report from Study
  Country: DE (occurrence: None)
  Receive Date: 20220218
  Receipt Date: 20230330
  Transmission Date: 20230418
  Serious: Yes (Hospitalization)
  Sender: FDA-Public Use
  Company Number: DE-ROCHE-3016468

PATIENT
  Age: 77 Year
  Sex: Female
  Weight: 80 kg

DRUGS (29)
  1. ATEZOLIZUMAB [Suspect]
     Active Substance: ATEZOLIZUMAB
     Indication: Triple negative breast cancer
     Dosage: ON 28/OCT/2021 AND 07/JAN/2022 RECEIVED LAST DOSE OF ATEZOLIZUMAB BEFORE EVENT.
     Route: 041
     Dates: start: 20211007, end: 20220106
  2. ATEZOLIZUMAB [Suspect]
     Active Substance: ATEZOLIZUMAB
     Route: 041
     Dates: start: 20220107
  3. PACLITAXEL [Suspect]
     Active Substance: PACLITAXEL
     Indication: Triple negative breast cancer
     Dosage: ON 04/NOV/2021 AND 13/JAN/2022 RECEIVED LAST DOSE OF PACLITAXEL BEFORE EVENT.?ON 30/DEC/2021, SHE RE
     Route: 042
     Dates: start: 20211007, end: 20211229
  4. PACLITAXEL [Suspect]
     Active Substance: PACLITAXEL
     Route: 042
     Dates: start: 20211230, end: 20220106
  5. PACLITAXEL [Suspect]
     Active Substance: PACLITAXEL
     Route: 042
     Dates: start: 20220107
  6. CARBOPLATIN [Suspect]
     Active Substance: CARBOPLATIN
     Indication: Triple negative breast cancer
     Dosage: ON 04/NOV/2021 AND  AND 13/JAN/2022 RECEIVED LAST DOSE OF CARBOPLATIN BEFORE EVENT.?DATE OF LAST DOS
     Route: 042
     Dates: start: 20211007, end: 20211229
  7. CARBOPLATIN [Suspect]
     Active Substance: CARBOPLATIN
     Route: 042
     Dates: start: 20211230, end: 20220106
  8. CARBOPLATIN [Suspect]
     Active Substance: CARBOPLATIN
     Route: 042
     Dates: start: 20220107
  9. SIMVASTATIN [Concomitant]
     Active Substance: SIMVASTATIN
     Dates: start: 2005
  10. LEVOTHYROXINE [Concomitant]
     Active Substance: LEVOTHYROXINE
     Dates: start: 1999
  11. BISOPROLOL [Concomitant]
     Active Substance: BISOPROLOL
     Dates: start: 2005
  12. LOSARTAN [Concomitant]
     Active Substance: LOSARTAN
     Dates: start: 2005
  13. DEXAMETHASONE [Concomitant]
     Active Substance: DEXAMETHASONE
     Dosage: OTHER
     Dates: start: 20211007, end: 20220113
  14. GRANISETRON [Concomitant]
     Active Substance: GRANISETRON
     Dosage: OTHER
     Dates: start: 20211007, end: 20220113
  15. DIMETINDENMALEAT [Concomitant]
     Dosage: OTHER
     Dates: start: 20211007, end: 20220113
  16. CIMETIDINE [Concomitant]
     Active Substance: CIMETIDINE
     Dosage: OTHER
     Dates: start: 20211007, end: 20220513
  17. CHLORHEXIDINE [Concomitant]
     Active Substance: CHLORHEXIDINE
     Dosage: OTHER
     Dates: start: 20211028
  18. CHLORHEXIDINE [Concomitant]
     Active Substance: CHLORHEXIDINE
     Dates: start: 20220121, end: 20220127
  19. ENOXAPARIN [Concomitant]
     Active Substance: ENOXAPARIN
     Dates: start: 20211118
  20. DEXPANTHENOL [Concomitant]
     Active Substance: DEXPANTHENOL
     Dosage: 50 MG/ML
     Dates: start: 20211111
  21. AMINO ACIDS\DEXTROSE\ELECTROLYTES NOS\SOYBEAN OIL [Concomitant]
     Active Substance: AMINO ACIDS\DEXTROSE\ELECTROLYTES NOS\SOYBEAN OIL
     Dates: start: 20211112, end: 20211115
  22. AMINO ACIDS\DEXTROSE\ELECTROLYTES NOS\SOYBEAN OIL [Concomitant]
     Active Substance: AMINO ACIDS\DEXTROSE\ELECTROLYTES NOS\SOYBEAN OIL
     Dates: start: 20220121, end: 20220124
  23. METHYLPREDNISOLONE ACEPONATE [Concomitant]
     Active Substance: METHYLPREDNISOLONE ACEPONATE
     Dates: start: 20220106
  24. METHYLPREDNISOLONE ACEPONATE [Concomitant]
     Active Substance: METHYLPREDNISOLONE ACEPONATE
     Dates: start: 20211112, end: 20211115
  25. MAGNESIUM [Concomitant]
     Active Substance: MAGNESIUM
     Dates: start: 20220106
  26. DECODERM TRI CREME [Concomitant]
     Dates: start: 20220121
  27. CALCIUM [Concomitant]
     Active Substance: CALCIUM
     Dates: start: 20220106
  28. FLUPREDNIDENE ACETATE\MICONAZOLE NITRATE [Concomitant]
     Active Substance: FLUPREDNIDENE ACETATE\MICONAZOLE NITRATE
     Dates: start: 20220121
  29. IBUPROFEN [Concomitant]
     Active Substance: IBUPROFEN
     Dates: start: 20220111

REACTIONS (2)
  - Hypokalaemia [Recovered/Resolved]
  - Hypokalaemia [Recovered/Resolved]

NARRATIVE: CASE EVENT DATE: 20211229
